FAERS Safety Report 10060188 (Version 1)
Quarter: 2014Q2

REPORT INFORMATION
  Report Type: Spontaneous
  Country: BR (occurrence: BR)
  Receive Date: 20140404
  Receipt Date: 20140404
  Transmission Date: 20141212
  Serious: Yes (Hospitalization, Other)
  Sender: FDA-Public Use
  Company Number: BR-BRISTOL-MYERS SQUIBB COMPANY-20567533

PATIENT
  Age: 56 Year
  Sex: Female
  Weight: 69 kg

DRUGS (9)
  1. BYETTA PEN DISPOSABLE [Suspect]
     Indication: HYPERGLYCAEMIA
     Dosage: INTRPTD ON 21MAR2014
     Route: 058
     Dates: start: 2011
  2. OMEPRAZOLE [Concomitant]
     Indication: PROPHYLAXIS
     Dosage: TABS
  3. SYNTHROID [Concomitant]
     Indication: HYPOTHYROIDISM
  4. DOMPERIDONE [Concomitant]
     Indication: PROPHYLAXIS
  5. RASILEZ [Concomitant]
     Indication: HYPERTENSION
  6. BUP-4 [Concomitant]
     Indication: DEPRESSION
  7. CEDUR [Concomitant]
     Indication: BLOOD CHOLESTEROL INCREASED
  8. GLIFAGE XR [Concomitant]
     Indication: HYPERGLYCAEMIA
     Dosage: TABS
  9. VITAMIN D [Concomitant]

REACTIONS (7)
  - Inguinal hernia [Recovered/Resolved]
  - Polyp [Recovered/Resolved]
  - Nausea [Recovering/Resolving]
  - Headache [Unknown]
  - Abdominal pain upper [Recovering/Resolving]
  - Blood immunoglobulin A decreased [Unknown]
  - Dysgeusia [Recovering/Resolving]
